FAERS Safety Report 25253692 (Version 1)
Quarter: 2025Q2

REPORT INFORMATION
  Report Type: Other
  Country: DE (occurrence: DE)
  Receive Date: 20250430
  Receipt Date: 20250430
  Transmission Date: 20250717
  Serious: Yes (Hospitalization, Disabling, Other)
  Sender: DEXCEL
  Company Number: DE-DEXPHARM-2025-2738

PATIENT
  Age: 86 Year
  Sex: Female

DRUGS (19)
  1. HYDROCHLOROTHIAZIDE\RAMIPRIL [Suspect]
     Active Substance: HYDROCHLOROTHIAZIDE\RAMIPRIL
     Indication: Blood pressure measurement
  2. METOPROLOL [Suspect]
     Active Substance: METOPROLOL
     Indication: Blood pressure measurement
  3. TORSEMIDE [Suspect]
     Active Substance: TORSEMIDE
     Indication: Blood pressure measurement
  4. PROMETHAZINE [Suspect]
     Active Substance: PROMETHAZINE HYDROCHLORIDE
  5. NALOXONE HYDROCHLORIDE\TILIDINE HYDROCHLORIDE [Suspect]
     Active Substance: NALOXONE HYDROCHLORIDE\TILIDINE HYDROCHLORIDE
  6. CINNARIZINE\DIMENHYDRINATE [Suspect]
     Active Substance: CINNARIZINE\DIMENHYDRINATE
     Indication: Dizziness
  7. CITALOPRAM [Suspect]
     Active Substance: CITALOPRAM
     Dosage: DOSE REDUCED FROM 40 MG TO 20 MG
  8. CITALOPRAM [Suspect]
     Active Substance: CITALOPRAM
     Dosage: DOSE REDUCED FROM 40 MG TO 20 MG
  9. Schwedentabletten [Concomitant]
  10. ALLOPURINOL [Concomitant]
     Active Substance: ALLOPURINOL
  11. PROPIVERINE [Concomitant]
     Active Substance: PROPIVERINE
  12. SIMVASTATIN [Suspect]
     Active Substance: SIMVASTATIN
  13. PANTOPRAZOLE [Suspect]
     Active Substance: PANTOPRAZOLE
     Dosage: DOSE REDUCED FROM 40 MG TO 20 MG
  14. PANTOPRAZOLE [Suspect]
     Active Substance: PANTOPRAZOLE
     Dosage: DOSE REDUCED FROM 40 MG TO 20 MG
  15. METFORMIN [Suspect]
     Active Substance: METFORMIN HYDROCHLORIDE
     Dosage: DOSE REDUCED FROM BID 850 MG TO BID 500 MG
  16. METFORMIN [Suspect]
     Active Substance: METFORMIN HYDROCHLORIDE
     Dosage: DOSE REDUCED FROM BID 850 MG TO BID 500 MG
  17. SITAGLIPTIN [Suspect]
     Active Substance: SITAGLIPTIN
     Dosage: DOSE REDUCED FROM BID 50 MG TO 50 MG ONCE DAILY
  18. SITAGLIPTIN [Suspect]
     Active Substance: SITAGLIPTIN
     Dosage: DOSE REDUCED FROM BID 50 MG TO 50 MG ONCE DAILY
  19. BISOPROLOL [Concomitant]
     Active Substance: BISOPROLOL

REACTIONS (13)
  - Fall [Recovered/Resolved]
  - Dizziness [Recovered/Resolved]
  - Fatigue [Recovered/Resolved]
  - Lethargy [Recovered/Resolved]
  - Dysphagia [Recovered/Resolved]
  - Constipation [Recovered/Resolved]
  - Craniofacial fracture [Recovered/Resolved]
  - Contusion [Recovered/Resolved]
  - Mobility decreased [Recovered/Resolved]
  - Prescribed overdose [Unknown]
  - Hyponatraemia [Unknown]
  - Medication error [Unknown]
  - Renal impairment [Unknown]
